FAERS Safety Report 10102835 (Version 1)
Quarter: 2014Q2

REPORT INFORMATION
  Report Type: Spontaneous
  Country: US (occurrence: US)
  Receive Date: 20140424
  Receipt Date: 20140424
  Transmission Date: 20141212
  Serious: Yes (Hospitalization)
  Sender: FDA-Public Use
  Company Number: US-BRISTOL-MYERS SQUIBB COMPANY-20567582

PATIENT
  Sex: Male

DRUGS (2)
  1. ELIQUIS [Suspect]
     Route: 048
  2. WARFARIN SODIUM [Suspect]

REACTIONS (1)
  - Cerebrovascular accident [Recovered/Resolved]
